FAERS Safety Report 16383057 (Version 1)
Quarter: 2019Q2

REPORT INFORMATION
  Report Type: Spontaneous
  Country: US (occurrence: US)
  Receive Date: 20190426
  Receipt Date: 20190426
  Transmission Date: 20190711
  Serious: Yes (Other)
  Sender: FDA-Public Use
  Company Number: None

PATIENT
  Age: 79 Year
  Sex: Female
  Weight: 113.4 kg

DRUGS (9)
  1. PROPRANOLOL [Suspect]
     Active Substance: PROPRANOLOL HYDROCHLORIDE
  2. ZYRTEC [Concomitant]
     Active Substance: CETIRIZINE HYDROCHLORIDE
  3. MAG 64 WITH CALCIUM [Concomitant]
  4. CHONDRITINE [Concomitant]
  5. JUNUVIA 25MG [Concomitant]
  6. GLIPIZIDE ER [Suspect]
     Active Substance: GLIPIZIDE
     Indication: DIABETES MELLITUS
     Dosage: ?          QUANTITY:1 DF DOSAGE FORM;?
     Route: 048
     Dates: start: 20181114, end: 20190220
  7. VIT D [Concomitant]
     Active Substance: VITAMIN D NOS
  8. ASPIRIN 81 G [Concomitant]
  9. GLUCOSAMINE [Concomitant]
     Active Substance: GLUCOSAMINE

REACTIONS (6)
  - Sleep talking [None]
  - Hallucination, visual [None]
  - Nightmare [None]
  - Screaming [None]
  - Abnormal dreams [None]
  - Fatigue [None]

NARRATIVE: CASE EVENT DATE: 20181114
